FAERS Safety Report 9374346 (Version 1)
Quarter: 2013Q2

REPORT INFORMATION
  Report Type: Spontaneous
  Country: US (occurrence: US)
  Receive Date: 20130628
  Receipt Date: 20130628
  Transmission Date: 20140414
  Serious: Yes (Other)
  Sender: FDA-Public Use
  Company Number: PHEH2013US013791

PATIENT
  Sex: Female

DRUGS (1)
  1. FANAPT [Suspect]
     Indication: SCHIZOPHRENIA
     Dosage: 6 MG, Q12H
     Route: 048

REACTIONS (1)
  - Orthostatic intolerance [Recovering/Resolving]
